FAERS Safety Report 4556522-6 (Version None)
Quarter: 2005Q1

REPORT INFORMATION
  Report Type: 
  Country: None (occurrence: None)
  Receive Date: 20050114
  Receipt Date: 20050106
  Transmission Date: 20050727
  Serious: Yes (Other)
  Sender: FDA-Public Use
  Company Number: 200421216BWH

PATIENT
  Age: 31 Year
  Sex: Male

DRUGS (2)
  1. CIPRO IV [Suspect]
     Indication: PREOPERATIVE CARE
     Dosage: 400 MG ONCE, INTRAVENOUS
     Route: 042
     Dates: start: 20041221
  2. ANCEF [Concomitant]

REACTIONS (5)
  - ANAPHYLACTIC REACTION [None]
  - DRUG HYPERSENSITIVITY [None]
  - INFUSION SITE REACTION [None]
  - MEDICATION ERROR [None]
  - PHARMACEUTICAL PRODUCT COMPLAINT [None]
